FAERS Safety Report 8622788-6 (Version None)
Quarter: 2012Q3

REPORT INFORMATION
  Report Type: 
  Country: None (occurrence: None)
  Receive Date: 20120827
  Receipt Date: 20120817
  Transmission Date: 20120928
  Serious: Yes (Other)
  Sender: FDA-Public Use
  Company Number: IE-JNJFOC-20120811690

PATIENT
  Age: 78 Year
  Sex: Male

DRUGS (4)
  1. PALEXIA [Suspect]
     Indication: BACK PAIN
     Route: 048
  2. LIDOCAINE [Concomitant]
     Indication: BACK PAIN
     Route: 061
  3. TRAMADOL HYDROCHLORIDE [Concomitant]
     Indication: BACK PAIN
     Route: 065
  4. LYRICA [Concomitant]
     Indication: PRODUCT USED FOR UNKNOWN INDICATION
     Route: 048

REACTIONS (2)
  - VISUAL IMPAIRMENT [None]
  - AMNESIA [None]
